FAERS Safety Report 24754031 (Version 1)
Quarter: 2024Q4

REPORT INFORMATION
  Report Type: Spontaneous
  Country: FR (occurrence: FR)
  Receive Date: 20241219
  Receipt Date: 20241219
  Transmission Date: 20250115
  Serious: Yes (Death)
  Sender: TEVA
  Company Number: None

PATIENT
  Age: 72 Year
  Sex: Female
  Weight: 55 kg

DRUGS (14)
  1. PEMETREXED [Suspect]
     Active Substance: PEMETREXED
     Indication: Bronchial carcinoma
     Dosage: TIME INTERVAL: TOTAL
     Route: 042
     Dates: start: 20241024
  2. ELIQUIS [Concomitant]
     Active Substance: APIXABAN
     Indication: Product used for unknown indication
     Route: 065
  3. ESOMEPRAZOLE [Concomitant]
     Active Substance: ESOMEPRAZOLE
     Indication: Product used for unknown indication
     Route: 065
  4. DOXYCYCLINE [Concomitant]
     Active Substance: DOXYCYCLINE
     Indication: Product used for unknown indication
     Route: 065
  5. APREPITANT [Concomitant]
     Active Substance: APREPITANT
     Indication: Product used for unknown indication
     Route: 065
  6. PAROXETINE HYDROCHLORIDE [Concomitant]
     Active Substance: PAROXETINE HYDROCHLORIDE
     Indication: Product used for unknown indication
     Dosage: PAROXETINE HYDROCHLORIDE ANHYDROUS
     Route: 065
  7. CARBOPLATIN [Suspect]
     Active Substance: CARBOPLATIN
     Indication: Bronchial carcinoma
     Dosage: TIME INTERVAL: TOTAL
     Route: 042
     Dates: start: 20241024
  8. METHYLPREDNISOLONE [Concomitant]
     Active Substance: METHYLPREDNISOLONE
     Indication: Product used for unknown indication
     Route: 065
  9. DEXCHLORPHENIRAMINE MALEATE [Concomitant]
     Active Substance: DEXCHLORPHENIRAMINE MALEATE
     Indication: Product used for unknown indication
     Route: 065
  10. RYBREVANT [Suspect]
     Active Substance: AMIVANTAMAB-VMJW
     Indication: Metastatic bronchial carcinoma
     Dosage: TIME INTERVAL: TOTAL: SOLUTION FOR DILUTION FOR INFUSION
     Route: 065
     Dates: start: 20241024
  11. RYBREVANT [Suspect]
     Active Substance: AMIVANTAMAB-VMJW
     Indication: Metastatic bronchial carcinoma
     Dosage: TIME INTERVAL: TOTAL: SOLUTION FOR DILUTION FOR INFUSION
     Route: 042
     Dates: start: 20241025
  12. PREDNISOLONE [Concomitant]
     Active Substance: PREDNISOLONE
     Indication: Product used for unknown indication
     Route: 065
  13. ONDANSETRON [Concomitant]
     Active Substance: ONDANSETRON
     Indication: Product used for unknown indication
     Route: 065
  14. ACETAMINOPHEN [Concomitant]
     Active Substance: ACETAMINOPHEN
     Indication: Product used for unknown indication
     Route: 065

REACTIONS (2)
  - Multiple organ dysfunction syndrome [Fatal]
  - Agranulocytosis [Fatal]

NARRATIVE: CASE EVENT DATE: 20241030
